FAERS Safety Report 10717212 (Version 2)
Quarter: 2015Q1

REPORT INFORMATION
  Report Type: Report from Study
  Country: US (occurrence: US)
  Receive Date: 20150116
  Receipt Date: 20150218
  Transmission Date: 20150721
  Serious: Yes (Other)
  Sender: FDA-Public Use
  Company Number: US-GILEAD-2014-0126192

PATIENT
  Age: 43 Year
  Sex: Female
  Weight: 65.31 kg

DRUGS (3)
  1. VIREAD [Suspect]
     Active Substance: TENOFOVIR DISOPROXIL FUMARATE
     Indication: VIRAL HEPATITIS CARRIER
     Dosage: UNK UNK, QD
     Route: 048
  2. ADEFOVIR DIPIVOXIL. [Suspect]
     Active Substance: ADEFOVIR DIPIVOXIL
     Indication: VIRAL HEPATITIS CARRIER
     Dosage: 10 MG, UNK
     Route: 048
     Dates: start: 2014
  3. ADEFOVIR DIPIVOXIL. [Suspect]
     Active Substance: ADEFOVIR DIPIVOXIL
     Indication: ANTIVIRAL PROPHYLAXIS

REACTIONS (3)
  - Pemphigus [Not Recovered/Not Resolved]
  - Weight decreased [Unknown]
  - Off label use [Unknown]

NARRATIVE: CASE EVENT DATE: 2014
